FAERS Safety Report 8817252 (Version 1)
Quarter: 2012Q4

REPORT INFORMATION
  Report Type: 
  Country: AU (occurrence: AU)
  Receive Date: 20121004
  Receipt Date: 20121004
  Transmission Date: 20130627
  Serious: Yes (Hospitalization, Disabling)
  Sender: FDA-Public Use
  Company Number: AU-BAUSCH-BL-2012-000334

PATIENT
  Sex: Female

DRUGS (1)
  1. MINIMS CYCLOPENTOLATE HYDROCHLORIDE 0.5% [Suspect]
     Indication: CONJUNCTIVITIS
     Route: 047

REACTIONS (3)
  - Drug dispensing error [Unknown]
  - Wrong drug administered [Unknown]
  - Eye excision [Not Recovered/Not Resolved]
